FAERS Safety Report 17547381 (Version 1)
Quarter: 2020Q1

REPORT INFORMATION
  Report Type: Spontaneous
  Country: SA (occurrence: SA)
  Receive Date: 20200316
  Receipt Date: 20200316
  Transmission Date: 20200409
  Serious: Yes (Life-Threatening, Hospitalization)
  Sender: FDA-Public Use
  Company Number: SA-OXFORD PHARMACEUTICALS, LLC-2020OXF00035

PATIENT
  Age: 46 Year
  Sex: Male

DRUGS (2)
  1. CAPTOPRIL. [Suspect]
     Active Substance: CAPTOPRIL
     Dosage: 150 MG
     Route: 065
  2. CAPTOPRIL. [Suspect]
     Active Substance: CAPTOPRIL
     Dosage: 25 MG, 1X/DAY
     Route: 065

REACTIONS (3)
  - Acute respiratory failure [Recovered/Resolved]
  - Angioedema [Recovered/Resolved]
  - Accidental overdose [Recovered/Resolved]
